FAERS Safety Report 8224009-5 (Version None)
Quarter: 2012Q1

REPORT INFORMATION
  Report Type: 
  Country: None (occurrence: None)
  Receive Date: 20120321
  Receipt Date: 20120313
  Transmission Date: 20120608
  Serious: Yes (Other)
  Sender: FDA-Public Use
  Company Number: PHHY2011US23999

PATIENT
  Sex: Female
  Weight: 85.64 kg

DRUGS (2)
  1. EXJADE [Suspect]
     Dosage: 1000 MG, DAILY
     Route: 048
     Dates: start: 20100912
  2. EXJADE [Suspect]
     Indication: IRON METABOLISM DISORDER
     Dosage: 1750 MG, QD
     Route: 048
     Dates: start: 20100903

REACTIONS (13)
  - GROIN PAIN [None]
  - GENERAL PHYSICAL CONDITION ABNORMAL [None]
  - DYSPNOEA EXERTIONAL [None]
  - RECTAL TENESMUS [None]
  - DYSURIA [None]
  - ABDOMINAL PAIN LOWER [None]
  - FATIGUE [None]
  - BLOOD PRESSURE DECREASED [None]
  - NAUSEA [None]
  - MALAISE [None]
  - ANAEMIA [None]
  - ALANINE AMINOTRANSFERASE DECREASED [None]
  - ABDOMINAL PAIN [None]
